FAERS Safety Report 5280511-X (Version None)
Quarter: 2007Q1

REPORT INFORMATION
  Report Type: 
  Country: None (occurrence: None)
  Receive Date: 20061215
  Receipt Date: 20060227
  Transmission Date: 20070707
  Serious: Yes (Other)
  Sender: FDA-Public Use
  Company Number: HQWYE107302MAR06

PATIENT
  Age: 79 Year
  Sex: Male
  Weight: 96.25 kg

DRUGS (7)
  1. EFFEXOR XR [Suspect]
     Dosage: SEE IMAGE
     Route: 048
     Dates: start: 20060201, end: 20060201
  2. EFFEXOR XR [Suspect]
     Dosage: SEE IMAGE
     Route: 048
     Dates: start: 20060208, end: 20060221
  3. COUMADIN [Concomitant]
  4. LIPITOR [Concomitant]
  5. COREG [Concomitant]
  6. BENAZEPRIL (BENAZEPRIL) [Concomitant]
  7. LANOXIN [Concomitant]

REACTIONS (7)
  - ABNORMAL BEHAVIOUR [None]
  - ARRHYTHMIA [None]
  - DISORIENTATION [None]
  - DIZZINESS [None]
  - DYSARTHRIA [None]
  - HEART RATE INCREASED [None]
  - SOMNOLENCE [None]
